FAERS Safety Report 8066380-3 (Version None)
Quarter: 2012Q1

REPORT INFORMATION
  Report Type: 
  Country: None (occurrence: None)
  Receive Date: 20120124
  Receipt Date: 20120124
  Transmission Date: 20120608
  Serious: No
  Sender: FDA-Public Use
  Company Number: None

PATIENT
  Age: 19 Year
  Sex: Female
  Weight: 45 kg

DRUGS (1)
  1. ROMIPLOSTIN [Suspect]
     Indication: IDIOPATHIC THROMBOCYTOPENIC PURPURA
     Dosage: 500MCG
     Route: 058
     Dates: start: 20110401, end: 20120119

REACTIONS (3)
  - RASH ERYTHEMATOUS [None]
  - PURPURA [None]
  - DRUG ERUPTION [None]
